FAERS Safety Report 25726002 (Version 1)
Quarter: 2025Q3

REPORT INFORMATION
  Report Type: Spontaneous
  Country: US (occurrence: US)
  Receive Date: 20250826
  Receipt Date: 20250826
  Transmission Date: 20251020
  Serious: No
  Sender: BAYER HEALTHCARE PHARMACEUTICALS INC.
  Company Number: US-BAYER-2025A112340

PATIENT
  Age: 5 Year
  Sex: Female

DRUGS (2)
  1. CIPRO [Suspect]
     Active Substance: CIPROFLOXACIN HYDROCHLORIDE
     Indication: Pityriasis lichenoides et varioliformis acuta
     Dosage: 10MG/KG/DOSE, BID
     Route: 042
  2. LINEZOLID [Concomitant]
     Active Substance: LINEZOLID
     Indication: Pityriasis lichenoides et varioliformis acuta
     Route: 042

REACTIONS (2)
  - Product use in unapproved indication [None]
  - Product prescribing issue [None]
